FAERS Safety Report 14740770 (Version 7)
Quarter: 2018Q2

REPORT INFORMATION
  Report Type: Spontaneous
  Country: IL (occurrence: IL)
  Receive Date: 20180410
  Receipt Date: 20180515
  Transmission Date: 20180711
  Serious: Yes (Death, Life-Threatening, Hospitalization)
  Sender: FDA-Public Use
  Company Number: IL-CELGENEUS-ISR-20180210075

PATIENT
  Age: 84 Year
  Sex: Male
  Weight: 54.5 kg

DRUGS (63)
  1. POMALIDOMIDE [Suspect]
     Active Substance: POMALIDOMIDE
     Indication: PLASMA CELL MYELOMA
     Dosage: 4 MG
     Route: 048
     Dates: start: 20170207, end: 20180213
  2. NIVOLUMAB [Suspect]
     Active Substance: NIVOLUMAB
     Dosage: 480 MG
     Route: 041
     Dates: start: 20170207, end: 20170516
  3. ELOTUZUMAB. [Concomitant]
     Active Substance: ELOTUZUMAB
     Dosage: 980 MG
     Route: 041
     Dates: start: 20170529
  4. A-HYDROCORT [Concomitant]
     Active Substance: HYDROCORTISONE SODIUM SUCCINATE
     Indication: PRODUCT USED FOR UNKNOWN INDICATION
     Route: 041
     Dates: start: 20180308
  5. KETAMINE [Concomitant]
     Active Substance: KETAMINE
     Indication: PRODUCT USED FOR UNKNOWN INDICATION
     Route: 041
  6. KETAMINE [Concomitant]
     Active Substance: KETAMINE
     Dosage: 500 MILLIGRAM
     Route: 065
     Dates: start: 20180309, end: 20180314
  7. ROCEPHINE [Concomitant]
     Active Substance: CEFTRIAXONE SODIUM
     Indication: PRODUCT USED FOR UNKNOWN INDICATION
     Route: 041
  8. TAMIFLU [Concomitant]
     Active Substance: OSELTAMIVIR PHOSPHATE
     Dosage: 30 MILLIGRAM
     Route: 065
     Dates: start: 20180306, end: 20180307
  9. CALCIUM+VITAMIN D [Concomitant]
     Active Substance: CALCIUM\VITAMIN D
     Dosage: 480 MG
     Route: 041
     Dates: start: 20170207, end: 20170516
  10. PLAVIX [Concomitant]
     Active Substance: CLOPIDOGREL BISULFATE
     Indication: PRODUCT USED FOR UNKNOWN INDICATION
     Dosage: 75 MILLIGRAM
     Route: 065
     Dates: start: 20170719
  11. PLAVIX [Concomitant]
     Active Substance: CLOPIDOGREL BISULFATE
     Dosage: 480 MG
     Route: 041
     Dates: start: 20170207, end: 20170516
  12. ELIQUIS [Concomitant]
     Active Substance: APIXABAN
     Dosage: 480 MG
     Route: 041
     Dates: start: 20170207, end: 20170516
  13. NIVOLUMAB [Suspect]
     Active Substance: NIVOLUMAB
     Indication: PLASMA CELL MYELOMA
     Dosage: 480 MG
     Route: 041
     Dates: start: 20170529, end: 20180213
  14. ELOTUZUMAB. [Concomitant]
     Active Substance: ELOTUZUMAB
     Indication: PLASMA CELL MYELOMA
     Dosage: 980 MG
     Route: 041
     Dates: start: 20170207, end: 20170516
  15. A-HYDROCORT [Concomitant]
     Active Substance: HYDROCORTISONE SODIUM SUCCINATE
     Dosage: 50 MILLIGRAM
     Route: 065
     Dates: start: 20180307, end: 20180307
  16. A-HYDROCORT [Concomitant]
     Active Substance: HYDROCORTISONE SODIUM SUCCINATE
     Dosage: 150 MILLIGRAM
     Route: 065
     Dates: start: 20180308
  17. APIDRA [Concomitant]
     Active Substance: INSULIN GLULISINE
     Indication: PRODUCT USED FOR UNKNOWN INDICATION
     Route: 058
     Dates: start: 20180311
  18. RESPRIM FORTE [Concomitant]
     Active Substance: SULFAMETHOXAZOLE\TRIMETHOPRIM
     Dosage: 800/160 MD
     Route: 065
     Dates: start: 20180308, end: 20180308
  19. TAZOCIN [Concomitant]
     Active Substance: PIPERACILLIN SODIUM\TAZOBACTAM SODIUM
     Indication: PRODUCT USED FOR UNKNOWN INDICATION
     Route: 041
  20. AREDIA [Concomitant]
     Active Substance: PAMIDRONATE DISODIUM
     Indication: PRODUCT USED FOR UNKNOWN INDICATION
     Dosage: 60 MILLIGRAM
     Route: 041
     Dates: start: 20140108
  21. ENALADEX [Concomitant]
     Active Substance: ENALAPRIL MALEATE
     Dosage: 480 MG
     Route: 041
     Dates: start: 20170207, end: 20170516
  22. SOLU-MEDROL [Concomitant]
     Active Substance: METHYLPREDNISOLONE SODIUM SUCCINATE
     Indication: PRODUCT USED FOR UNKNOWN INDICATION
     Route: 041
  23. AZENIL [Concomitant]
     Dosage: 500 MILLIGRAM
     Route: 065
     Dates: start: 20180307, end: 20180309
  24. HALDOL [Concomitant]
     Active Substance: HALOPERIDOL
     Indication: PRODUCT USED FOR UNKNOWN INDICATION
     Route: 030
  25. HALDOL [Concomitant]
     Active Substance: HALOPERIDOL
     Dosage: .5 MILLIGRAM
     Route: 065
     Dates: start: 20180307, end: 20180307
  26. ROCEPHINE [Concomitant]
     Active Substance: CEFTRIAXONE SODIUM
     Dosage: 2 GRAM
     Route: 065
     Dates: start: 20180306, end: 20180309
  27. PREDNITONE [Concomitant]
     Dosage: 15 MILLIGRAM
     Route: 065
     Dates: start: 20180319
  28. ACYCLO-V [Concomitant]
     Indication: PRODUCT USED FOR UNKNOWN INDICATION
     Dosage: 400 MILLIGRAM
     Route: 065
     Dates: start: 20131002
  29. MICROPIRIN [Concomitant]
     Active Substance: ASPIRIN
     Indication: PRODUCT USED FOR UNKNOWN INDICATION
     Dosage: 100 MILLIGRAM
     Route: 065
     Dates: start: 20160508
  30. FUSID [Concomitant]
     Active Substance: FUROSEMIDE
     Indication: PRODUCT USED FOR UNKNOWN INDICATION
     Route: 048
  31. APIDRA [Concomitant]
     Active Substance: INSULIN GLULISINE
     Dosage: 18 UNIT
     Route: 065
     Dates: start: 20180311
  32. KEPPRA [Concomitant]
     Active Substance: LEVETIRACETAM
     Dosage: 1500 MILLIGRAM
     Route: 065
     Dates: start: 20180322
  33. ENALADEX [Concomitant]
     Active Substance: ENALAPRIL MALEATE
     Indication: PRODUCT USED FOR UNKNOWN INDICATION
     Dosage: 5 MILLIGRAM
     Route: 065
     Dates: start: 20080925
  34. FUSID [Concomitant]
     Active Substance: FUROSEMIDE
     Dosage: 40 MILLIGRAM
     Route: 065
     Dates: start: 20180306, end: 20180309
  35. RESPRIM FORTE [Concomitant]
     Active Substance: SULFAMETHOXAZOLE\TRIMETHOPRIM
     Dosage: 160 MILLIGRAM
     Route: 065
     Dates: start: 20131002
  36. TAMIFLU [Concomitant]
     Active Substance: OSELTAMIVIR PHOSPHATE
     Indication: PRODUCT USED FOR UNKNOWN INDICATION
     Route: 048
  37. VANCOMYCIN [Concomitant]
     Active Substance: VANCOMYCIN
     Dosage: 1000 MILLIGRAM
     Route: 065
     Dates: start: 20180309, end: 20180309
  38. PREDNITONE [Concomitant]
     Indication: PRODUCT USED FOR UNKNOWN INDICATION
     Route: 048
  39. NORMALOL [Concomitant]
     Active Substance: ATENOLOL
     Indication: PRODUCT USED FOR UNKNOWN INDICATION
     Dosage: 25 MILLIGRAM
     Route: 065
     Dates: start: 20100609
  40. MICROPIRIN [Concomitant]
     Active Substance: ASPIRIN
     Dosage: 480 MG
     Route: 041
     Dates: start: 20170207, end: 20170516
  41. CARDILOC [Concomitant]
     Active Substance: BISOPROLOL FUMARATE
     Indication: PRODUCT USED FOR UNKNOWN INDICATION
     Dosage: 1.25 MILLIGRAM
     Route: 065
     Dates: start: 20170730
  42. DEXAMETHASONE ORAL [Suspect]
     Active Substance: DEXAMETHASONE
     Indication: PLASMA CELL MYELOMA
     Dosage: VARIABLE DOSE BETWEEN 8 AND 20MG
     Route: 048
     Dates: start: 20170207, end: 20180213
  43. CALCIUM+VITAMIN D [Concomitant]
     Active Substance: CALCIUM\VITAMIN D
     Indication: PRODUCT USED FOR UNKNOWN INDICATION
     Dosage: 600 MILLIGRAM
     Route: 065
     Dates: start: 20170302
  44. CARDILOC [Concomitant]
     Active Substance: BISOPROLOL FUMARATE
     Dosage: 480 MG
     Route: 041
     Dates: start: 20170207, end: 20170516
  45. INSULIN [Concomitant]
     Active Substance: INSULIN NOS
     Indication: PRODUCT USED FOR UNKNOWN INDICATION
     Route: 058
  46. NIVOLUMAB [Suspect]
     Active Substance: NIVOLUMAB
     Route: 041
     Dates: start: 20170207, end: 20180213
  47. ELOTUZUMAB. [Concomitant]
     Active Substance: ELOTUZUMAB
     Dosage: 980 MG
     Route: 041
     Dates: start: 20170207, end: 20180213
  48. ACAMOLI [Concomitant]
     Indication: PRODUCT USED FOR UNKNOWN INDICATION
     Route: 054
     Dates: start: 20180306
  49. FUSID [Concomitant]
     Active Substance: FUROSEMIDE
     Route: 041
  50. NORMALOL [Concomitant]
     Active Substance: ATENOLOL
     Dosage: 480 MG
     Route: 041
     Dates: start: 20170207, end: 20170516
  51. ACYCLO-V [Concomitant]
     Dosage: 480 MG
     Route: 041
     Dates: start: 20170207, end: 20170516
  52. ELIQUIS [Concomitant]
     Active Substance: APIXABAN
     Indication: PRODUCT USED FOR UNKNOWN INDICATION
     Dosage: 5 MILLIGRAM
     Route: 065
     Dates: start: 20170802
  53. ROSUVASTATIN. [Concomitant]
     Active Substance: ROSUVASTATIN
     Indication: PRODUCT USED FOR UNKNOWN INDICATION
     Dosage: 5 MILLIGRAM
     Route: 065
     Dates: start: 20170614
  54. AZENIL [Concomitant]
     Indication: PRODUCT USED FOR UNKNOWN INDICATION
     Route: 048
  55. RESPRIM FORTE [Concomitant]
     Active Substance: SULFAMETHOXAZOLE\TRIMETHOPRIM
     Indication: PRODUCT USED FOR UNKNOWN INDICATION
     Route: 048
  56. RESPRIM FORTE [Concomitant]
     Active Substance: SULFAMETHOXAZOLE\TRIMETHOPRIM
     Dosage: 800/160 MG
     Route: 065
     Dates: start: 20180312, end: 20180312
  57. TAZOCIN [Concomitant]
     Active Substance: PIPERACILLIN SODIUM\TAZOBACTAM SODIUM
     Dosage: 18 GRAM
     Route: 065
     Dates: start: 20180309, end: 20180321
  58. VANCOMYCIN [Concomitant]
     Active Substance: VANCOMYCIN
     Indication: PRODUCT USED FOR UNKNOWN INDICATION
     Route: 041
  59. JANUVIA [Concomitant]
     Active Substance: SITAGLIPTIN PHOSPHATE
     Indication: PRODUCT USED FOR UNKNOWN INDICATION
     Route: 065
     Dates: start: 20170802
  60. NOVONORM [Concomitant]
     Active Substance: REPAGLINIDE
     Indication: PRODUCT USED FOR UNKNOWN INDICATION
     Dosage: 2 MILLIGRAM
     Route: 041
     Dates: start: 20170730
  61. KEPPRA [Concomitant]
     Active Substance: LEVETIRACETAM
     Indication: PRODUCT USED FOR UNKNOWN INDICATION
     Route: 041
  62. KEPPRA [Concomitant]
     Active Substance: LEVETIRACETAM
     Route: 048
  63. ROSUVASTATIN. [Concomitant]
     Active Substance: ROSUVASTATIN
     Dosage: 480 MG
     Route: 041
     Dates: start: 20170207, end: 20170516

REACTIONS (4)
  - Encephalitis [Not Recovered/Not Resolved]
  - Sepsis [Fatal]
  - Pneumonia [Not Recovered/Not Resolved]
  - Hyponatraemia [Recovered/Resolved with Sequelae]

NARRATIVE: CASE EVENT DATE: 20180222
